FAERS Safety Report 22342342 (Version 1)
Quarter: 2023Q2

REPORT INFORMATION
  Report Type: Spontaneous
  Country: DE (occurrence: DE)
  Receive Date: 20230519
  Receipt Date: 20230519
  Transmission Date: 20230722
  Serious: Yes (Hospitalization, Other)
  Sender: FDA-Public Use
  Company Number: DE-BRISTOL-MYERS SQUIBB COMPANY-2023-069990

PATIENT
  Age: 51 Year
  Sex: Male

DRUGS (1)
  1. IPILIMUMAB [Suspect]
     Active Substance: IPILIMUMAB
     Indication: Choroid melanoma
     Route: 058
     Dates: start: 201504, end: 201507

REACTIONS (4)
  - Autoimmune colitis [Unknown]
  - Duodenitis [Unknown]
  - Gastritis [Unknown]
  - Ileus paralytic [Unknown]

NARRATIVE: CASE EVENT DATE: 20150808
